FAERS Safety Report 7343195-2 (Version None)
Quarter: 2011Q1

REPORT INFORMATION
  Report Type: 
  Country: None (occurrence: None)
  Receive Date: 20110310
  Receipt Date: 20110225
  Transmission Date: 20110831
  Serious: Yes (Other)
  Sender: FDA-Public Use
  Company Number: IL-CELGENEUS-082-C5013-10061393

PATIENT
  Sex: Male
  Weight: 67 kg

DRUGS (10)
  1. CC-5013 [Suspect]
     Dosage: 25 MILLIGRAM
     Route: 048
     Dates: start: 20081209, end: 20100427
  2. AREDIA [Concomitant]
     Indication: PROPHYLAXIS
     Route: 065
  3. PREDNISONE [Suspect]
     Indication: MULTIPLE MYELOMA
     Route: 048
     Dates: start: 20070911, end: 20080513
  4. ATENOLOL [Concomitant]
     Indication: HYPERTENSION
     Route: 065
  5. NORVASC [Concomitant]
     Indication: HYPERTENSION
     Route: 065
  6. CC-5013 [Suspect]
     Indication: MULTIPLE MYELOMA
     Dosage: 25 MILLIGRAM
     Route: 048
     Dates: start: 20070911, end: 20080513
  7. PLACEBO FOR CC-5013 [Suspect]
     Indication: MULTIPLE MYELOMA
     Route: 048
  8. ASPIRIN [Concomitant]
     Indication: HYPERTENSION
     Route: 065
  9. MELPHALAN [Suspect]
     Indication: MULTIPLE MYELOMA
     Route: 048
     Dates: start: 20070911, end: 20080513
  10. ENALADEX [Concomitant]
     Indication: HYPERTENSION
     Route: 065

REACTIONS (1)
  - MYELODYSPLASTIC SYNDROME [None]
